FAERS Safety Report 5694447-3 (Version None)
Quarter: 2008Q2

REPORT INFORMATION
  Report Type: 
  Country: None (occurrence: None)
  Receive Date: 20080404
  Receipt Date: 20080327
  Transmission Date: 20081010
  Serious: Yes (Other)
  Sender: FDA-Public Use
  Company Number: PHHY2008JP03773

PATIENT
  Age: 53 Year
  Sex: Female

DRUGS (2)
  1. DIOVAN [Suspect]
     Indication: HYPERTENSION
     Dosage: 80 MG ONCE DAILY
     Route: 048
     Dates: start: 20060601
  2. UNSPECIFIED PSYCHIATRIC MEDICATION [Concomitant]

REACTIONS (4)
  - ANGIOEDEMA [None]
  - LIP SWELLING [None]
  - SWOLLEN TONGUE [None]
  - TONGUE OPERATION [None]
